FAERS Safety Report 10045951 (Version 2)
Quarter: 2014Q1

REPORT INFORMATION
  Report Type: Spontaneous
  Country: GB (occurrence: GB)
  Receive Date: 20140330
  Receipt Date: 20140330
  Transmission Date: 20141002
  Serious: Yes (Other)
  Sender: FDA-Public Use
  Company Number: GB-009507513-1403GBR007090

PATIENT
  Age: 20 Year
  Sex: Female

DRUGS (2)
  1. NEXPLANON [Suspect]
     Indication: CONTRACEPTION
     Dosage: FREQUENCY EVERY THREE YEARS
     Route: 059
     Dates: start: 20140311, end: 20140311
  2. NEXPLANON [Suspect]
     Dosage: UNK
     Route: 059
     Dates: start: 20140311

REACTIONS (2)
  - Device difficult to use [Recovered/Resolved]
  - Product quality issue [Unknown]
